FAERS Safety Report 5127504-0 (Version None)
Quarter: 2006Q4

REPORT INFORMATION
  Report Type: 
  Country: None (occurrence: None)
  Receive Date: 20061010
  Receipt Date: 20060926
  Transmission Date: 20070319
  Serious: Yes (Other)
  Sender: FDA-Public Use
  Company Number: 2006116227

PATIENT
  Age: 72 Year
  Sex: Male

DRUGS (3)
  1. DETRUSITOL SR [Suspect]
     Indication: NEUROGENIC BLADDER
     Dosage: 4 MG, ORAL
     Route: 048
     Dates: start: 20060919, end: 20060901
  2. URINORM        (BENZBROMARONE) [Concomitant]
  3. BUP-4  (PROPIVERINE HYDROCHLORIDE) [Concomitant]

REACTIONS (2)
  - HEADACHE [None]
  - VOMITING [None]
